FAERS Safety Report 8342073-X (Version None)
Quarter: 2012Q2

REPORT INFORMATION
  Report Type: 
  Country: None (occurrence: None)
  Receive Date: 20120507
  Receipt Date: 20120426
  Transmission Date: 20120825
  Serious: Yes (Life-Threatening, Hospitalization, Other)
  Sender: FDA-Public Use
  Company Number: AU-ROCHE-1039977

PATIENT
  Sex: Male

DRUGS (13)
  1. DURAGESIC-100 [Concomitant]
  2. ACTEMRA [Suspect]
     Indication: RHEUMATOID ARTHRITIS
     Dates: start: 20110708
  3. KARVEA [Concomitant]
  4. ACTEMRA [Suspect]
     Route: 042
     Dates: start: 20110601, end: 20110911
  5. ACTEMRA [Suspect]
     Route: 042
     Dates: start: 20111101
  6. PREDNISOLONE [Concomitant]
  7. CITALOPRAM HYDROBROMIDE [Concomitant]
  8. INDAPAMIDE [Concomitant]
  9. LASIX [Concomitant]
  10. ACTEMRA [Suspect]
     Dosage: VOLUME OF INFUSION IS 800 MG
     Dates: start: 20120426
  11. ZYLOPRIM [Concomitant]
  12. METHOTREXATE [Concomitant]
  13. RABEPRAZOLE SODIUM [Concomitant]

REACTIONS (3)
  - LIP AND/OR ORAL CAVITY CANCER [None]
  - PHARYNGEAL CANCER STAGE UNSPECIFIED [None]
  - CONVULSION [None]
